FAERS Safety Report 21880914 (Version 1)
Quarter: 2023Q1

REPORT INFORMATION
  Report Type: Spontaneous
  Country: US (occurrence: US)
  Receive Date: 20230118
  Receipt Date: 20230118
  Transmission Date: 20230417
  Serious: No
  Sender: FDA-Public Use
  Company Number: US-BAUSCHBL-2023BNL000201

PATIENT
  Age: 72 Year
  Sex: Female

DRUGS (1)
  1. LACRISERT [Suspect]
     Active Substance: HYDROXYPROPYL CELLULOSE
     Indication: Dry eye
     Route: 047

REACTIONS (3)
  - Eye pain [Unknown]
  - Facial pain [Unknown]
  - Wrong technique in product usage process [Unknown]
